FAERS Safety Report 13346057 (Version 5)
Quarter: 2021Q4

REPORT INFORMATION
  Report Type: Report from Study
  Country: CA (occurrence: CA)
  Receive Date: 20170317
  Receipt Date: 20211207
  Transmission Date: 20220303
  Serious: Yes (Hospitalization)
  Sender: FDA-Public Use
  Company Number: CA-002147023-PHHY2016CA038594

PATIENT

DRUGS (2)
  1. RUXOLITINIB [Suspect]
     Active Substance: RUXOLITINIB
     Indication: Polycythaemia vera
     Dosage: 10 MG, BID
     Route: 048
     Dates: start: 20160211
  2. RUXOLITINIB [Suspect]
     Active Substance: RUXOLITINIB
     Dosage: 15 MG, BID
     Route: 048

REACTIONS (11)
  - Abdominal pain [Unknown]
  - Pyrexia [Unknown]
  - Full blood count increased [Recovered/Resolved]
  - Cough [Unknown]
  - Dysuria [Unknown]
  - Headache [Unknown]
  - Diarrhoea [Unknown]
  - Anxiety [Unknown]
  - Cardiac disorder [Recovering/Resolving]
  - Pain [Unknown]
  - Stomatitis [Unknown]

NARRATIVE: CASE EVENT DATE: 20161201
